FAERS Safety Report 23446406 (Version 6)
Quarter: 2024Q1

REPORT INFORMATION
  Report Type: Spontaneous
  Country: US (occurrence: US)
  Receive Date: 20240126
  Receipt Date: 20240320
  Transmission Date: 20240409
  Serious: Yes (Other)
  Sender: FDA-Public Use
  Company Number: US-PFIZER INC-202400018328

PATIENT
  Age: 71 Year
  Sex: Female

DRUGS (3)
  1. ESTRING [Suspect]
     Active Substance: ESTRADIOL
     Indication: Cystitis
     Dosage: UNK
     Dates: start: 2014
  2. ESTRING [Suspect]
     Active Substance: ESTRADIOL
     Indication: Cystocele
  3. ELIQUIS [Concomitant]
     Active Substance: APIXABAN
     Dosage: UNK

REACTIONS (5)
  - Pneumonia [Unknown]
  - Intervertebral disc protrusion [Unknown]
  - Off label use [Unknown]
  - Drug effective for unapproved indication [Unknown]
  - Malaise [Unknown]
